FAERS Safety Report 8519663-4 (Version None)
Quarter: 2012Q3

REPORT INFORMATION
  Report Type: 
  Country: None (occurrence: None)
  Receive Date: 20120719
  Receipt Date: 20120710
  Transmission Date: 20120928
  Serious: Yes (Hospitalization, Other)
  Sender: FDA-Public Use
  Company Number: DE-AMGEN-DEUSP2012043910

PATIENT
  Age: 56 Year
  Sex: Female

DRUGS (2)
  1. ENBREL [Suspect]
     Indication: RHEUMATOID ARTHRITIS
     Dosage: 50 MG, WEEKLY
     Dates: start: 20100630, end: 20120702
  2. METHOTREXATE [Concomitant]
     Dosage: 10 MG, UNK
     Route: 058

REACTIONS (2)
  - GASTROINTESTINAL CARCINOMA [None]
  - BLADDER CANCER [None]
